FAERS Safety Report 13162552 (Version 2)
Quarter: 2017Q1

REPORT INFORMATION
  Report Type: Spontaneous
  Country: US (occurrence: US)
  Receive Date: 20170130
  Receipt Date: 20170307
  Transmission Date: 20170428
  Serious: No
  Sender: FDA-Public Use
  Company Number: US-PFIZER INC-2017038195

PATIENT
  Age: 63 Year
  Sex: Female

DRUGS (18)
  1. GEMFIBROZIL. [Concomitant]
     Active Substance: GEMFIBROZIL
  2. WARFARIN [Concomitant]
     Active Substance: WARFARIN
  3. OMEPRAZOL [Concomitant]
     Active Substance: OMEPRAZOLE
  4. HYDROCODONE/ACETAMINOPHEN [Concomitant]
     Active Substance: ACETAMINOPHEN\HYDROCODONE
  5. PREDNISONE. [Concomitant]
     Active Substance: PREDNISONE
  6. LIOTHYRONINE [Concomitant]
     Active Substance: LIOTHYRONINE
  7. ACYCLOVIR. [Concomitant]
     Active Substance: ACYCLOVIR
  8. RAPAMUNE [Suspect]
     Active Substance: SIROLIMUS
     Indication: RENAL TRANSPLANT
     Dosage: 20 MG, 1X/DAY
     Dates: start: 20011126
  9. ADDERALL [Concomitant]
     Active Substance: AMPHETAMINE ASPARTATE\AMPHETAMINE SULFATE\DEXTROAMPHETAMINE SACCHARATE\DEXTROAMPHETAMINE SULFATE
  10. MAGNESIUM OXIDE. [Concomitant]
     Active Substance: MAGNESIUM OXIDE
  11. IVIG [Concomitant]
     Active Substance: HUMAN IMMUNOGLOBULIN G
     Dosage: UNK
  12. ALPRAZOLAN [Concomitant]
     Active Substance: ALPRAZOLAM
  13. LEVOTHYROXINE. [Concomitant]
     Active Substance: LEVOTHYROXINE
  14. LOVASTATIN. [Concomitant]
     Active Substance: LOVASTATIN
  15. ONDANSETRON [Concomitant]
     Active Substance: ONDANSETRON
  16. POTASSIUM [Concomitant]
     Active Substance: POTASSIUM
  17. TRAZODONE [Concomitant]
     Active Substance: TRAZODONE HYDROCHLORIDE
  18. BENICAR [Concomitant]
     Active Substance: OLMESARTAN MEDOXOMIL

REACTIONS (4)
  - Abdominal discomfort [Recovered/Resolved]
  - Dysphonia [Not Recovered/Not Resolved]
  - Secretion discharge [Not Recovered/Not Resolved]
  - Malaise [Recovered/Resolved]
